FAERS Safety Report 13548729 (Version 1)
Quarter: 2017Q2

REPORT INFORMATION
  Report Type: Spontaneous
  Country: TW (occurrence: TW)
  Receive Date: 20170516
  Receipt Date: 20170516
  Transmission Date: 20170830
  Serious: Yes (Other)
  Sender: FDA-Public Use
  Company Number: TW-APOTEX-2017AP008767

PATIENT
  Age: 71 Year
  Sex: Female

DRUGS (12)
  1. CLONAZEPAM. [Concomitant]
     Active Substance: CLONAZEPAM
     Indication: ANXIETY
     Route: 065
  2. PAROXETINE. [Suspect]
     Active Substance: PAROXETINE
     Indication: ANXIETY
     Dosage: 25 MG, QD
     Route: 065
  3. ESCITALOPRAM [Suspect]
     Active Substance: ESCITALOPRAM OXALATE
     Indication: RESTLESSNESS
  4. ZOLPIDEM [Concomitant]
     Active Substance: ZOLPIDEM\ZOLPIDEM TARTRATE
     Indication: IRRITABILITY
  5. PAROXETINE. [Suspect]
     Active Substance: PAROXETINE
     Indication: IRRITABILITY
  6. ESCITALOPRAM [Suspect]
     Active Substance: ESCITALOPRAM OXALATE
     Indication: ANXIETY
     Dosage: 10 MG, UNK
     Route: 065
  7. ZOLPIDEM [Concomitant]
     Active Substance: ZOLPIDEM\ZOLPIDEM TARTRATE
     Indication: ANXIETY
     Route: 065
  8. ZOLPIDEM [Concomitant]
     Active Substance: ZOLPIDEM\ZOLPIDEM TARTRATE
     Indication: RESTLESSNESS
  9. ESCITALOPRAM [Suspect]
     Active Substance: ESCITALOPRAM OXALATE
     Indication: IRRITABILITY
  10. CLONAZEPAM. [Concomitant]
     Active Substance: CLONAZEPAM
     Indication: IRRITABILITY
  11. PAROXETINE. [Suspect]
     Active Substance: PAROXETINE
     Indication: RESTLESSNESS
  12. CLONAZEPAM. [Concomitant]
     Active Substance: CLONAZEPAM
     Indication: RESTLESSNESS

REACTIONS (14)
  - Extrapyramidal disorder [Unknown]
  - Bradykinesia [Unknown]
  - Gait disturbance [Unknown]
  - Muscle rigidity [Unknown]
  - Urinary incontinence [Unknown]
  - Cognitive disorder [Unknown]
  - Rapid eye movement sleep behaviour disorder [Unknown]
  - Hypokinesia [Unknown]
  - Akinesia [Unknown]
  - Illusion [Unknown]
  - Progressive supranuclear palsy [Unknown]
  - Hallucination, visual [Unknown]
  - Parkinsonism [Unknown]
  - Drug intolerance [Unknown]
